FAERS Safety Report 16467249 (Version 1)
Quarter: 2019Q2

REPORT INFORMATION
  Report Type: Spontaneous
  Country: FR (occurrence: FR)
  Receive Date: 20190624
  Receipt Date: 20190624
  Transmission Date: 20190711
  Serious: Yes (Death, Other)
  Sender: FDA-Public Use
  Company Number: FR-SUN PHARMACEUTICAL INDUSTRIES LTD-2019RR-211288

PATIENT
  Age: 83 Year
  Sex: Female

DRUGS (15)
  1. METFORMIN [Suspect]
     Active Substance: METFORMIN HYDROCHLORIDE
     Indication: TYPE 2 DIABETES MELLITUS
     Dosage: 3000 MILLIGRAM, DAILY
     Route: 048
  2. CLAFORAN [Concomitant]
     Active Substance: CEFOTAXIME SODIUM
     Indication: BRONCHITIS
     Dosage: 3 GRAM, DAILY
     Route: 042
     Dates: start: 20190406, end: 20190413
  3. MONO TILDIEM [Concomitant]
     Active Substance: DILTIAZEM HYDROCHLORIDE
     Indication: MYOCARDIAL ISCHAEMIA
     Dosage: 300 MILLIGRAM, DAILY
     Route: 048
  4. IMOVANE [Concomitant]
     Active Substance: ZOPICLONE
     Indication: PRODUCT USED FOR UNKNOWN INDICATION
     Dosage: 7.5 MILLIGRAM, DAILY
     Route: 048
  5. KARDEGIC [Concomitant]
     Active Substance: ASPIRIN DL-LYSINE
     Indication: PRODUCT USED FOR UNKNOWN INDICATION
     Dosage: 75 MILLIGRAM, DAILY
     Route: 048
  6. STABLON [Concomitant]
     Active Substance: TIANEPTINE
     Indication: PRODUCT USED FOR UNKNOWN INDICATION
     Dosage: ()
     Route: 048
  7. FLUDEX [Concomitant]
     Indication: HYPERTENSION
     Dosage: 1.5 MILLIGRAM, DAILY
     Route: 048
  8. CERIS [Concomitant]
     Active Substance: TROSPIUM CHLORIDE
     Indication: PRODUCT USED FOR UNKNOWN INDICATION
     Dosage: 20 MILLIGRAM, DAILY
     Route: 048
  9. ELIQUIS [Concomitant]
     Active Substance: APIXABAN
     Indication: ATRIAL FIBRILLATION
     Dosage: 5 MILLIGRAM, DAILY
     Route: 048
     Dates: start: 20190406, end: 20190408
  10. BISOCE [Concomitant]
     Active Substance: BISOPROLOL
     Indication: MYOCARDIAL ISCHAEMIA
     Dosage: 2.5 MILLIGRAM, DAILY
     Route: 048
     Dates: start: 20190406, end: 20190408
  11. DIAMICRON [Concomitant]
     Active Substance: GLICLAZIDE
     Indication: TYPE 2 DIABETES MELLITUS
     Dosage: 60 MILLIGRAM, DAILY
     Route: 048
  12. LASILIX 40 MG, COMPRIME SECABLE [Concomitant]
     Active Substance: FUROSEMIDE
     Indication: HYPERTENSION
     Dosage: 40 MILLIGRAM, DAILY
     Route: 048
     Dates: start: 20190406, end: 20190408
  13. JANUMET [Concomitant]
     Active Substance: METFORMIN HYDROCHLORIDE\SITAGLIPTIN PHOSPHATE
     Indication: TYPE 2 DIABETES MELLITUS
     Dosage: 3 DOSAGE FORM, DAILY
     Route: 048
  14. ROVAMYCINE [Concomitant]
     Active Substance: SPIRAMYCIN
     Indication: BRONCHITIS
     Dosage: 3 MEGA-INTERNATIONAL UNIT, DAILY
     Route: 042
     Dates: start: 20190406, end: 20190408
  15. XENETIX [Concomitant]
     Active Substance: IOBITRIDOL
     Indication: PRODUCT USED FOR UNKNOWN INDICATION
     Dosage: ()
     Route: 042
     Dates: start: 20190406, end: 20190406

REACTIONS (5)
  - Lactic acidosis [Not Recovered/Not Resolved]
  - Encephalopathy [Fatal]
  - Overdose [Fatal]
  - Acute kidney injury [Not Recovered/Not Resolved]
  - Hepatic failure [Fatal]

NARRATIVE: CASE EVENT DATE: 20190408
